FAERS Safety Report 8587552-5 (Version None)
Quarter: 2012Q3

REPORT INFORMATION
  Report Type: 
  Country: None (occurrence: None)
  Receive Date: 20120810
  Receipt Date: 20120806
  Transmission Date: 20120928
  Serious: Yes (Hospitalization)
  Sender: FDA-Public Use
  Company Number: CA-ROCHE-GNE304143

PATIENT
  Sex: Female
  Weight: 74.093 kg

DRUGS (7)
  1. DOXYCYL [Concomitant]
     Indication: PRODUCT USED FOR UNKNOWN INDICATION
  2. DEXTROAMPHETAMINE [Concomitant]
  3. PREDNISONE TAB [Concomitant]
     Indication: PRODUCT USED FOR UNKNOWN INDICATION
     Dosage: 15 MG, QD
  4. XOLAIR [Suspect]
     Dosage: 150 MG, Q2W
     Route: 058
     Dates: start: 20090826
  5. XOLAIR [Suspect]
     Dosage: 150 MG, 1/MONTH
     Route: 058
     Dates: start: 20100309
  6. XOLAIR [Suspect]
     Indication: ASTHMA
     Route: 058
     Dates: start: 20090729
  7. QVAR 40 [Concomitant]
     Indication: PRODUCT USED FOR UNKNOWN INDICATION

REACTIONS (18)
  - MALAISE [None]
  - CONTUSION [None]
  - UROSEPSIS [None]
  - CONVULSION [None]
  - ASTHENIA [None]
  - DRUG INEFFECTIVE [None]
  - SKIN ATROPHY [None]
  - BLOOD GLUCOSE INCREASED [None]
  - SPEECH DISORDER [None]
  - ASTHMA [None]
  - RESPIRATORY FAILURE [None]
  - CEREBROVASCULAR ACCIDENT [None]
  - LACERATION [None]
  - LUNG DISORDER [None]
  - COUGH [None]
  - PULMONARY CONGESTION [None]
  - HYPOTENSION [None]
  - VIRAL INFECTION [None]
